FAERS Safety Report 22585536 (Version 1)
Quarter: 2023Q2

REPORT INFORMATION
  Report Type: Spontaneous
  Country: RU (occurrence: RU)
  Receive Date: 20230610
  Receipt Date: 20230610
  Transmission Date: 20230721
  Serious: Yes (Other)
  Sender: FDA-Public Use
  Company Number: RU-TEVA-2023-RU-2894258

PATIENT
  Age: 11 Year
  Sex: Female

DRUGS (4)
  1. CARBOPLATIN [Suspect]
     Active Substance: CARBOPLATIN
     Indication: Brain neoplasm
     Route: 065
  2. VINCRISTINE [Suspect]
     Active Substance: VINCRISTINE
     Indication: Brain neoplasm
     Route: 065
  3. DABRAFENIB [Suspect]
     Active Substance: DABRAFENIB
     Indication: Brain neoplasm
     Route: 065
  4. TRAMETINIB [Suspect]
     Active Substance: TRAMETINIB
     Indication: Brain neoplasm
     Route: 065

REACTIONS (7)
  - Bulbar palsy [Recovered/Resolved]
  - Neurological decompensation [Recovered/Resolved]
  - Choking [Recovered/Resolved]
  - Hiccups [Recovered/Resolved]
  - Neoplasm progression [Recovering/Resolving]
  - Weight increased [Recovering/Resolving]
  - Glucose tolerance impaired [Recovering/Resolving]
